FAERS Safety Report 12651810 (Version 1)
Quarter: 2016Q3

REPORT INFORMATION
  Report Type: Spontaneous
  Country: US (occurrence: US)
  Receive Date: 20160815
  Receipt Date: 20160815
  Transmission Date: 20161109
  Serious: No
  Sender: FDA-Public Use
  Company Number: US-GALDERMA-US15008436

PATIENT
  Age: 27 Year
  Sex: Female

DRUGS (4)
  1. SODIUM SULFACEPAMIDE 10% CLEANSER [Concomitant]
     Indication: THERAPEUTIC SKIN CARE TOPICAL
     Dosage: 10%
     Route: 061
  2. DIFFERIN [Suspect]
     Active Substance: ADAPALENE
     Indication: ACNE
     Dosage: 0.3%
     Route: 061
     Dates: start: 20151111, end: 20151118
  3. D-AMPHETAMINE [Concomitant]
     Active Substance: DEXTROAMPHETAMINE
     Dates: start: 2013
  4. ESCITALOPRAM [Concomitant]
     Active Substance: ESCITALOPRAM OXALATE
     Dates: start: 201509

REACTIONS (3)
  - Rash erythematous [Recovered/Resolved]
  - Skin burning sensation [Recovered/Resolved]
  - Pruritus [Recovered/Resolved]

NARRATIVE: CASE EVENT DATE: 20151117
